FAERS Safety Report 22142302 (Version 1)
Quarter: 2023Q1

REPORT INFORMATION
  Report Type: Report from Study
  Country: US (occurrence: None)
  Receive Date: 20230327
  Receipt Date: 20230327
  Transmission Date: 20230417
  Serious: Yes (Death, Other)
  Sender: FDA-Public Use
  Company Number: 2023A069955

PATIENT
  Sex: Female

DRUGS (14)
  1. TAGRISSO [Suspect]
     Active Substance: OSIMERTINIB
     Indication: Lung carcinoma cell type unspecified stage 0
     Dosage: TAB 40MG
     Route: 048
     Dates: start: 20221115
  2. BUPROPION [Concomitant]
     Active Substance: BUPROPION
     Dosage: 100.0MG UNKNOWN
  3. DEXAMETHASONE [Concomitant]
     Active Substance: DEXAMETHASONE
     Dosage: 4.0MG UNKNOWN
  4. FOLIC ACID [Concomitant]
     Active Substance: FOLIC ACID
     Dosage: 800.0UG UNKNOWN
  5. FUROSFMIDE [Concomitant]
     Dosage: 40.0MG UNKNOWN
  6. GABAPENTIN [Concomitant]
     Active Substance: GABAPENTIN
     Dosage: 300.0MG UNKNOWN
  7. HYDROXYZINE [Concomitant]
     Active Substance: HYDROXYZINE HYDROCHLORIDE
     Dosage: 25.0MG UNKNOWN
  8. LABETALOL [Concomitant]
     Active Substance: LABETALOL\LABETALOL HYDROCHLORIDE
     Dosage: 100.0MG UNKNOWN
  9. METOCLOPRAMI [Concomitant]
     Dosage: 10.0MG UNKNOWN
  10. MOVANTIK [Concomitant]
     Active Substance: NALOXEGOL OXALATE
     Dosage: 25.0MG UNKNOWN
  11. NOVOLOG [Concomitant]
     Active Substance: INSULIN ASPART
  12. RALOXIFENE [Concomitant]
     Active Substance: RALOXIFENE
     Dosage: 60.0MG UNKNOWN
  13. SUCRALFATE [Concomitant]
     Active Substance: SUCRALFATE
  14. ZOLPIDEM [Concomitant]
     Active Substance: ZOLPIDEM TARTRATE
     Dosage: 5.0MG UNKNOWN

REACTIONS (1)
  - Death [Fatal]
